FAERS Safety Report 7990177-3 (Version None)
Quarter: 2011Q4

REPORT INFORMATION
  Report Type: 
  Country: None (occurrence: None)
  Receive Date: 20111219
  Receipt Date: 20111219
  Transmission Date: 20120403
  Serious: Yes (Death, Hospitalization)
  Sender: FDA-Public Use
  Company Number: TW-BAYER-2011-121318

PATIENT
  Age: 83 Year
  Sex: Female

DRUGS (3)
  1. AVELOX [Suspect]
     Indication: KNEE ARTHROPLASTY
  2. AVELOX [Suspect]
     Indication: PYREXIA
  3. CEFAZOLIN [Suspect]
     Indication: PYREXIA

REACTIONS (3)
  - MENINGITIS TUBERCULOUS [None]
  - STEVENS-JOHNSON SYNDROME [None]
  - AUTOIMMUNE DISORDER [None]
